FAERS Safety Report 6903065-8 (Version None)
Quarter: 2010Q3

REPORT INFORMATION
  Report Type: 
  Country: None (occurrence: None)
  Receive Date: 20100803
  Receipt Date: 20080816
  Transmission Date: 20110219
  Serious: No
  Sender: FDA-Public Use
  Company Number: US-PFIZER INC-2008068354

PATIENT
  Age: 57 Year
  Sex: Male

DRUGS (5)
  1. LYRICA [Suspect]
  2. PREDNISONE [Concomitant]
  3. SKELAXIN [Concomitant]
  4. LOTENSIN [Concomitant]
  5. DRUG, UNSPECIFIED [Concomitant]

REACTIONS (1)
  - DEPRESSION [None]
